FAERS Safety Report 10650903 (Version 2)
Quarter: 2014Q4

REPORT INFORMATION
  Report Type: Report from Study
  Country: US (occurrence: US)
  Receive Date: 20141215
  Receipt Date: 20141215
  Transmission Date: 20150529
  Serious: Yes (Hospitalization, Other)
  Sender: FDA-Public Use
  Company Number: US-AMGEN-USASP2013034856

PATIENT
  Age: 65 Year
  Sex: Male

DRUGS (2)
  1. PREDNISONE. [Concomitant]
     Active Substance: PREDNISONE
     Dosage: UNK
  2. ENBREL [Suspect]
     Active Substance: ETANERCEPT
     Indication: PSORIATIC ARTHROPATHY
     Dosage: 50 MG, QWK
     Route: 065
     Dates: start: 20011121

REACTIONS (11)
  - Psoriatic arthropathy [Unknown]
  - Pain in extremity [Unknown]
  - Weight decreased [Unknown]
  - Arthralgia [Unknown]
  - Mobility decreased [Not Recovered/Not Resolved]
  - Pyrexia [Unknown]
  - Musculoskeletal stiffness [Unknown]
  - Musculoskeletal pain [Unknown]
  - Spinal fusion surgery [Recovered/Resolved]
  - Bedridden [Not Recovered/Not Resolved]
  - Neuralgia [Unknown]
